FAERS Safety Report 6695435-0 (Version None)
Quarter: 2010Q2

REPORT INFORMATION
  Report Type: 
  Country: None (occurrence: None)
  Receive Date: 20100422
  Receipt Date: 20100422
  Transmission Date: 20101027
  Serious: No
  Sender: FDA-Public Use
  Company Number: None

PATIENT
  Age: 69 Year
  Sex: Female
  Weight: 76.2043 kg

DRUGS (2)
  1. FAMCICLOVIR [Suspect]
     Indication: HERPES SIMPLEX
     Dosage: 125 MG
  2. FAMVIR [Suspect]
     Indication: HERPES SIMPLEX
     Dosage: 125MG

REACTIONS (5)
  - COLD SWEAT [None]
  - DYSPHAGIA [None]
  - TABLET ISSUE [None]
  - THROAT IRRITATION [None]
  - TINNITUS [None]
